FAERS Safety Report 24531039 (Version 2)
Quarter: 2024Q4

REPORT INFORMATION
  Report Type: Spontaneous
  Country: US (occurrence: US)
  Receive Date: 20241022
  Receipt Date: 20241024
  Transmission Date: 20250115
  Serious: Yes (Other)
  Sender: PFIZER
  Company Number: US-PFIZER INC-202400279546

PATIENT
  Age: 62 Year
  Sex: Female
  Weight: 85.28 kg

DRUGS (1)
  1. PROPOFOL [Suspect]
     Active Substance: PROPOFOL
     Dosage: UNK

REACTIONS (4)
  - Myopathy toxic [Recovering/Resolving]
  - Propofol infusion syndrome [Unknown]
  - Pain [Unknown]
  - Movement disorder [Recovering/Resolving]

NARRATIVE: CASE EVENT DATE: 20241015
